FAERS Safety Report 19463854 (Version 2)
Quarter: 2021Q2

REPORT INFORMATION
  Report Type: Spontaneous
  Country: US (occurrence: US)
  Receive Date: 20210625
  Receipt Date: 20210629
  Transmission Date: 20210717
  Serious: No
  Sender: FDA-Public Use
  Company Number: US-SA-2021SA202719

PATIENT
  Age: 90 Year
  Sex: Female

DRUGS (1)
  1. TOUJEO [Suspect]
     Active Substance: INSULIN GLARGINE
     Indication: TYPE 2 DIABETES MELLITUS
     Dosage: 10 UNITS AND SOMETIMES 1,2, OR 3 UNITS AT NIGHT, QD
     Route: 065

REACTIONS (3)
  - Product storage error [Unknown]
  - Blood glucose abnormal [Unknown]
  - Drug ineffective [Unknown]
